FAERS Safety Report 11459792 (Version 1)
Quarter: 2015Q3

REPORT INFORMATION
  Report Type: Report from Study
  Country: KR (occurrence: KR)
  Receive Date: 20150904
  Receipt Date: 20150904
  Transmission Date: 20151125
  Serious: Yes (Other)
  Sender: FDA-Public Use
  Company Number: KR-OTSUKA-JP-2014-19986

PATIENT

DRUGS (13)
  1. TOLVAPTAN [Suspect]
     Active Substance: TOLVAPTAN
     Indication: HYPONATRAEMIA
     Dosage: 15 MG, QD
     Route: 048
     Dates: start: 20141210, end: 20141212
  2. WARFARIN [Concomitant]
     Active Substance: WARFARIN
     Indication: VENTRICULAR TACHYCARDIA
     Dosage: 2 MG, QD
     Route: 048
     Dates: start: 20141213, end: 20141214
  3. SPIRONOLACTONE. [Concomitant]
     Active Substance: SPIRONOLACTONE
     Indication: HYPONATRAEMIA
     Dosage: 25 MG, QD
     Route: 048
     Dates: start: 20141213
  4. GLIMEPIRIDE. [Concomitant]
     Active Substance: GLIMEPIRIDE
     Indication: HYPONATRAEMIA
     Dosage: 2 MG, QD
     Route: 048
     Dates: start: 20141210, end: 20141210
  5. FUROSEMIDE. [Concomitant]
     Active Substance: FUROSEMIDE
     Indication: HYPONATRAEMIA
     Dosage: 240 MG, QD
     Route: 048
     Dates: start: 20141213
  6. DOBUTAMIN [Concomitant]
     Indication: HYPONATRAEMIA
     Dosage: 500 MG, QD
     Route: 042
     Dates: start: 20141128
  7. TRIMETAZIDINE [Concomitant]
     Active Substance: TRIMETAZIDINE
     Indication: PROPHYLAXIS
     Dosage: 70 MG, QD
     Route: 048
     Dates: start: 20140813
  8. AMBROXOL [Concomitant]
     Active Substance: AMBROXOL
     Indication: PROPHYLAXIS
     Dosage: 90 MG, QD
     Route: 048
     Dates: start: 20140813
  9. ISOSORBIDE DINITRATE. [Concomitant]
     Active Substance: ISOSORBIDE DINITRATE
     Indication: HYPONATRAEMIA
     Dosage: 40 MG, QD
     Route: 048
     Dates: start: 20140813
  10. FUROSEMIDE. [Concomitant]
     Active Substance: FUROSEMIDE
     Dosage: 120 MG, QD
     Route: 042
     Dates: start: 20141209, end: 20141213
  11. DONEPEZIL. [Concomitant]
     Active Substance: DONEPEZIL
     Indication: HYPONATRAEMIA
     Dosage: 10 MG, QD
     Route: 048
     Dates: start: 20140618
  12. DIGOXIN. [Concomitant]
     Active Substance: DIGOXIN
     Indication: HYPONATRAEMIA
     Dosage: 0.125 MG, QD
     Route: 048
     Dates: start: 20141211, end: 20141212
  13. DIGOXIN. [Concomitant]
     Active Substance: DIGOXIN
     Dosage: 0.25 MG, QD
     Route: 048
     Dates: start: 20141209, end: 20141210

REACTIONS (1)
  - Ventricular tachycardia [Recovered/Resolved]

NARRATIVE: CASE EVENT DATE: 20141211
